FAERS Safety Report 17978646 (Version 1)
Quarter: 2020Q3

REPORT INFORMATION
  Report Type: Spontaneous
  Country: US (occurrence: US)
  Receive Date: 20200703
  Receipt Date: 20200703
  Transmission Date: 20201103
  Serious: No
  Sender: FDA-Public Use
  Company Number: US-SUNOVION-2020SUN001841

PATIENT
  Sex: Female

DRUGS (3)
  1. BROVANA [Suspect]
     Active Substance: ARFORMOTEROL TARTRATE
     Route: 055
  2. IPRATROPIUM BROMIDE. [Concomitant]
     Active Substance: IPRATROPIUM BROMIDE
  3. YUPELRI [Concomitant]
     Active Substance: REVEFENACIN

REACTIONS (2)
  - Chest pain [Unknown]
  - Candida infection [Unknown]
